FAERS Safety Report 9388828 (Version 1)
Quarter: 2013Q3

REPORT INFORMATION
  Report Type: Spontaneous
  Country: US (occurrence: US)
  Receive Date: 20130708
  Receipt Date: 20130708
  Transmission Date: 20140515
  Serious: Yes (Other)
  Sender: FDA-Public Use
  Company Number: US-BAYER-2013-080690

PATIENT
  Age: 69 Year
  Sex: Female
  Weight: 59.41 kg

DRUGS (8)
  1. ALEVE CAPLET [Suspect]
     Indication: ARTHRALGIA
     Dosage: UNK UNK, PRN
  2. HUMIRA [Suspect]
     Indication: COLITIS ULCERATIVE
     Dosage: 160 MG, QD
     Dates: start: 20130313, end: 20130313
  3. HUMIRA [Suspect]
     Indication: COLITIS ULCERATIVE
     Dosage: 80 MG, QD
     Dates: start: 20130327, end: 20130327
  4. HUMIRA [Suspect]
     Indication: COLITIS ULCERATIVE
     Dosage: 40 MG, Q2WK
     Dates: start: 20130410
  5. SYNTHROID [Concomitant]
     Indication: HYPOTHYROIDISM
     Dosage: UNK
  6. MULTIVITAMINS [Concomitant]
     Indication: SUPPLEMENTATION THERAPY
     Dosage: UNK
  7. PROTONIX [Concomitant]
     Indication: COLITIS ULCERATIVE
     Dosage: UNK
  8. IRON [Concomitant]
     Indication: COLITIS ULCERATIVE
     Dosage: UNK

REACTIONS (4)
  - Rectal haemorrhage [None]
  - Arthritis [None]
  - Chondropathy [None]
  - Arthralgia [None]
